FAERS Safety Report 6262748-6 (Version None)
Quarter: 2009Q3

REPORT INFORMATION
  Report Type: 
  Country: None (occurrence: None)
  Receive Date: 20090709
  Receipt Date: 20090701
  Transmission Date: 20100115
  Serious: Yes (Hospitalization, Other)
  Sender: FDA-Public Use
  Company Number: US-ABBOTT-09P-163-0583224-00

PATIENT
  Sex: Female
  Weight: 56.75 kg

DRUGS (3)
  1. DEPAKOTE ER [Suspect]
     Indication: BIPOLAR DISORDER
     Route: 048
     Dates: start: 19940101, end: 20090618
  2. QUETIAPINE FUMARATE [Suspect]
     Indication: BIPOLAR DISORDER
  3. VALPROATE SODIUM [Suspect]
     Indication: BIPOLAR DISORDER
     Dates: start: 20090618, end: 20090621

REACTIONS (9)
  - ANGER [None]
  - ANXIETY [None]
  - FEELING ABNORMAL [None]
  - ILL-DEFINED DISORDER [None]
  - MIGRAINE [None]
  - MOVEMENT DISORDER [None]
  - NERVOUSNESS [None]
  - OBSESSIVE-COMPULSIVE DISORDER [None]
  - WITHDRAWAL SYNDROME [None]
